FAERS Safety Report 4738030-2 (Version None)
Quarter: 2005Q3

REPORT INFORMATION
  Report Type: 
  Country: None (occurrence: None)
  Receive Date: 20050809
  Receipt Date: 20050801
  Transmission Date: 20060218
  Serious: Yes (Other)
  Sender: FDA-Public Use
  Company Number: PHFR2005GB02631

PATIENT
  Age: 12 Year
  Sex: Male
  Weight: 60 kg

DRUGS (3)
  1. METHYLPHENIDATE HCL [Suspect]
     Indication: ATTENTION DEFICIT/HYPERACTIVITY DISORDER
     Dosage: 10MG/DAY
     Route: 048
     Dates: start: 20050316
  2. METHYLPHENIDATE HCL [Suspect]
     Dosage: 5 MG, TID
     Route: 048
  3. BENYLIN [Concomitant]
     Route: 065

REACTIONS (1)
  - HALLUCINATION [None]
